FAERS Safety Report 4725703-0 (Version None)
Quarter: 2005Q3

REPORT INFORMATION
  Report Type: 
  Country: None (occurrence: None)
  Receive Date: 20050722
  Receipt Date: 20050722
  Transmission Date: 20060218
  Serious: Yes (Hospitalization)
  Sender: FDA-Public Use
  Company Number: None

PATIENT
  Age: 67 Year
  Sex: Male

DRUGS (4)
  1. AMLODIPINE [Suspect]
     Dosage: 10MG QD ORAL
     Route: 048
  2. HYDROCHLOROTHIAZIDE [Suspect]
     Dosage: 25MG QD ORAL
     Route: 048
  3. METOPROLOL [Concomitant]
  4. COZAAR [Concomitant]

REACTIONS (2)
  - HYPOTENSION [None]
  - POST PROCEDURAL COMPLICATION [None]
